FAERS Safety Report 15783389 (Version 1)
Quarter: 2019Q1

REPORT INFORMATION
  Report Type: Spontaneous
  Country: CN (occurrence: CN)
  Receive Date: 20190102
  Receipt Date: 20190102
  Transmission Date: 20190417
  Serious: Yes (Hospitalization)
  Sender: FDA-Public Use
  Company Number: CN-BAYER-2019-000417

PATIENT
  Age: 75 Year
  Sex: Male
  Weight: 70 kg

DRUGS (1)
  1. GLUCOBAY [Suspect]
     Active Substance: ACARBOSE
     Indication: BLOOD GLUCOSE INCREASED
     Dosage: 1 DF, TID
     Route: 048
     Dates: start: 20181017, end: 20181024

REACTIONS (1)
  - Abdominal distension [Recovering/Resolving]

NARRATIVE: CASE EVENT DATE: 20181024
